FAERS Safety Report 10340568 (Version 2)
Quarter: 2014Q3

REPORT INFORMATION
  Report Type: Spontaneous
  Country: JP (occurrence: JP)
  Receive Date: 20140724
  Receipt Date: 20140805
  Transmission Date: 20150326
  Serious: Yes (Hospitalization)
  Sender: FDA-Public Use
  Company Number: JP-GLAXOSMITHKLINE-B0999583A

PATIENT
  Age: 90 Year
  Sex: Male

DRUGS (6)
  1. AVOLVE [Suspect]
     Active Substance: DUTASTERIDE
     Indication: URINARY RETENTION
     Dosage: .5MG PER DAY
     Route: 048
     Dates: start: 20140314
  2. URIEF [Concomitant]
     Active Substance: SILODOSIN
     Indication: URINARY RETENTION
     Dosage: 4MG TWICE PER DAY
     Route: 048
  3. MIYA-BM [Concomitant]
     Active Substance: CLOSTRIDIUM BUTYRICUM SPORES STRAIN M-55
     Indication: DIARRHOEA
     Dosage: 1IUAX THREE TIMES PER DAY
     Route: 048
  4. NORVASC [Concomitant]
     Active Substance: AMLODIPINE BESYLATE
     Indication: HYPERTENSION
     Dosage: 5MG PER DAY
     Route: 048
  5. TAKEPRON [Concomitant]
     Active Substance: LANSOPRAZOLE
     Indication: HAEMORRHAGE PROPHYLAXIS
     Dosage: 15MG PER DAY
     Route: 048
  6. MAGMITT [Concomitant]
     Active Substance: MAGNESIUM OXIDE
     Indication: CONSTIPATION
     Dosage: 660MG TWICE PER DAY
     Route: 048

REACTIONS (4)
  - Vasodilatation [Unknown]
  - Gastric haemorrhage [Unknown]
  - Angiodysplasia [Unknown]
  - Gastrointestinal haemorrhage [Recovered/Resolved]

NARRATIVE: CASE EVENT DATE: 201404
